FAERS Safety Report 5339201-7 (Version None)
Quarter: 2007Q2

REPORT INFORMATION
  Report Type: 
  Country: None (occurrence: None)
  Receive Date: 20070330
  Receipt Date: 20060703
  Transmission Date: 20071010
  Serious: No
  Sender: FDA-Public Use
  Company Number: 2006AC01229

PATIENT
  Age: 51 Year
  Sex: Female
  Weight: 63 kg

DRUGS (18)
  1. LISINOPRIL [Suspect]
  2. ALBUTEROL [Concomitant]
  3. SALMETEROL [Concomitant]
  4. FLUTICASONE PROPIONATE [Concomitant]
  5. METFORMIN HCL [Concomitant]
  6. ESOMEPRAZOLE MAGNESIUM [Concomitant]
  7. ESTROGENS SOL/INJ [Concomitant]
  8. MIDAZOLAM HCL [Concomitant]
  9. FENTANYL [Concomitant]
  10. PROPOFOL [Concomitant]
  11. VECURONIUM BROMIDE [Concomitant]
  12. SEVOFLURANE [Concomitant]
  13. NITROUS OXIDE IN OXYGEN [Concomitant]
  14. DEXAMETHASONE 0.5MG TAB [Concomitant]
  15. NEOSTIGMINE [Concomitant]
  16. GLYCOPYRROLATE [Concomitant]
  17. ONDANSETRON [Concomitant]
  18. CLINDAMYCIN HCL [Concomitant]

REACTIONS (1)
  - TONGUE OEDEMA [None]
